FAERS Safety Report 6809983-3 (Version None)
Quarter: 2010Q2

REPORT INFORMATION
  Report Type: 
  Country: None (occurrence: None)
  Receive Date: 20100630
  Receipt Date: 20100623
  Transmission Date: 20101027
  Serious: Yes (Hospitalization)
  Sender: FDA-Public Use
  Company Number: A0867514A

PATIENT
  Sex: Female

DRUGS (1)
  1. AVANDIA [Suspect]
     Dosage: 8MG TWICE PER DAY

REACTIONS (5)
  - AMNESIA [None]
  - INSOMNIA [None]
  - MYOCARDIAL INFARCTION [None]
  - RENAL FAILURE [None]
  - SUICIDAL IDEATION [None]
